FAERS Safety Report 11856643 (Version 2)
Quarter: 2015Q4

REPORT INFORMATION
  Report Type: Spontaneous
  Country: GB (occurrence: GB)
  Receive Date: 20151221
  Receipt Date: 20151230
  Transmission Date: 20160305
  Serious: Yes (Other)
  Sender: FDA-Public Use
  Company Number: GB-EMD SERONO-8059251

PATIENT
  Age: 49 Year
  Sex: Male

DRUGS (2)
  1. RAMIPRIL. [Concomitant]
     Active Substance: RAMIPRIL
     Indication: HYPERTENSION
     Route: 048
  2. REBIF [Suspect]
     Active Substance: INTERFERON BETA-1A
     Indication: PRODUCT USED FOR UNKNOWN INDICATION
     Dates: end: 201511

REACTIONS (16)
  - Mean cell haemoglobin concentration decreased [Unknown]
  - Aspartate aminotransferase increased [Not Recovered/Not Resolved]
  - Gamma-glutamyltransferase increased [Not Recovered/Not Resolved]
  - C-reactive protein increased [Unknown]
  - Jaundice [Recovered/Resolved]
  - Serum ferritin increased [Unknown]
  - Mean cell haemoglobin decreased [Unknown]
  - Blood glucose increased [Unknown]
  - Platelet count decreased [Unknown]
  - Alpha-1 anti-trypsin increased [Unknown]
  - Cholelithiasis [Not Recovered/Not Resolved]
  - Blood alkaline phosphatase increased [Not Recovered/Not Resolved]
  - Alanine aminotransferase increased [Not Recovered/Not Resolved]
  - Blood creatinine decreased [Unknown]
  - Influenza like illness [Not Recovered/Not Resolved]
  - Hiatus hernia [Unknown]

NARRATIVE: CASE EVENT DATE: 20140603
